FAERS Safety Report 4362471-9 (Version None)
Quarter: 2004Q2

REPORT INFORMATION
  Report Type: 
  Country: None (occurrence: None)
  Receive Date: 20040521
  Receipt Date: 20040517
  Transmission Date: 20050107
  Serious: Yes (Hospitalization)
  Sender: FDA-Public Use
  Company Number: JP-GLAXOSMITHKLINE-B0333040A

PATIENT
  Age: 80 Year
  Sex: Female

DRUGS (6)
  1. VALTREX [Suspect]
     Indication: HERPES ZOSTER
     Dosage: 1000MG THREE TIMES PER DAY
     Route: 048
     Dates: start: 20040513, end: 20040515
  2. ADALAT [Concomitant]
     Dosage: 20MG PER DAY
     Route: 048
  3. SELECTOL [Concomitant]
     Dosage: 100MG PER DAY
     Route: 048
  4. MOBIC [Concomitant]
     Dosage: 5MG PER DAY
     Route: 048
  5. ACINON [Concomitant]
     Dosage: 75MG PER DAY
     Route: 048
  6. GLYBURIDE [Concomitant]
     Dosage: .625MG PER DAY
     Route: 048

REACTIONS (4)
  - BLOOD CREATININE INCREASED [None]
  - BLOOD UREA INCREASED [None]
  - DEPRESSED LEVEL OF CONSCIOUSNESS [None]
  - RENAL FAILURE ACUTE [None]
